FAERS Safety Report 8928074 (Version 2)
Quarter: 2012Q4

REPORT INFORMATION
  Report Type: 
  Country: US (occurrence: US)
  Receive Date: 20121128
  Receipt Date: 20121219
  Transmission Date: 20130627
  Serious: Yes (Other)
  Sender: FDA-Public Use
  Company Number: US-JNJFOC-20121110512

PATIENT
  Age: 71 Year
  Sex: Female
  Weight: 70.31 kg

DRUGS (7)
  1. XARELTO [Suspect]
     Indication: CEREBROVASCULAR ACCIDENT PROPHYLAXIS
     Route: 048
     Dates: start: 20121107, end: 20121110
  2. XARELTO [Suspect]
     Indication: ATRIAL FIBRILLATION
     Route: 048
     Dates: start: 20121107, end: 20121110
  3. ATENOLOL [Concomitant]
     Indication: HYPERTENSION
     Route: 048
     Dates: start: 1992
  4. TRIAMTERENE HCTZ [Concomitant]
     Indication: HYPERTENSION
     Route: 048
     Dates: start: 1992
  5. SYNTHROID [Concomitant]
     Indication: THYROID DISORDER
  6. CALCIUM [Concomitant]
  7. FISH OIL [Concomitant]

REACTIONS (2)
  - Feeling hot [Recovered/Resolved]
  - Inappropriate schedule of drug administration [Recovered/Resolved]
